FAERS Safety Report 6582428-7 (Version None)
Quarter: 2010Q1

REPORT INFORMATION
  Report Type: 
  Country: None (occurrence: None)
  Receive Date: 20100216
  Receipt Date: 20100203
  Transmission Date: 20100710
  Serious: Yes (Hospitalization, Other)
  Sender: FDA-Public Use
  Company Number: PHHY2009JP37330

PATIENT
  Sex: Female
  Weight: 55 kg

DRUGS (9)
  1. GLEEVEC [Suspect]
     Indication: CHRONIC MYELOID LEUKAEMIA
     Dosage: 600 MG/DAY
     Route: 048
     Dates: start: 20080904, end: 20081125
  2. GLEEVEC [Suspect]
     Dosage: 400 MG/DAY
     Route: 048
     Dates: start: 20081206, end: 20090116
  3. HYDREA [Concomitant]
     Indication: CHRONIC MYELOID LEUKAEMIA
     Dosage: 2000 MG, UNK
     Route: 048
     Dates: start: 20080908, end: 20080928
  4. PLAVIX [Concomitant]
     Indication: SYNCOPE
     Dosage: 75 MG, UNK
     Route: 048
     Dates: start: 20080908, end: 20081201
  5. NIPOLAZIN [Concomitant]
     Indication: RASH
     Dosage: 6 MG, UNK
     Route: 048
     Dates: start: 20080915, end: 20081213
  6. EURAX [Concomitant]
     Indication: RASH
     Dosage: UNK
     Route: 061
     Dates: start: 20081105, end: 20081213
  7. THYRADIN [Concomitant]
     Indication: AUTOIMMUNE THYROIDITIS
     Dosage: 25 UG,UNK
     Route: 048
     Dates: start: 20080904
  8. LOCOID [Concomitant]
     Indication: RASH
     Dosage: UNK
     Route: 061
     Dates: start: 20090118, end: 20090125
  9. SPRYCEL [Concomitant]
     Dosage: UNK
     Route: 048
     Dates: start: 20090202, end: 20090421

REACTIONS (8)
  - ANAEMIA [None]
  - APLASIA PURE RED CELL [None]
  - EOSINOPHIL COUNT INCREASED [None]
  - ERYTHEMA [None]
  - PLATELET COUNT INCREASED [None]
  - PRURITUS [None]
  - SKIN EXFOLIATION [None]
  - SYNCOPE [None]
